FAERS Safety Report 18339700 (Version 1)
Quarter: 2020Q4

REPORT INFORMATION
  Report Type: Spontaneous
  Country: US (occurrence: US)
  Receive Date: 20201002
  Receipt Date: 20201002
  Transmission Date: 20210113
  Serious: No
  Sender: FDA-Public Use
  Company Number: US-PFIZER INC-2020379782

PATIENT
  Age: 54 Year
  Sex: Female
  Weight: 52.15 kg

DRUGS (1)
  1. IBRANCE [Suspect]
     Active Substance: PALBOCICLIB
     Indication: BREAST CANCER FEMALE
     Dosage: 125 MG, CYCLIC (DAILY 21 DAYS)
     Route: 048
     Dates: start: 20200310

REACTIONS (3)
  - Spinal pain [Unknown]
  - Bone pain [Unknown]
  - Musculoskeletal chest pain [Unknown]
